FAERS Safety Report 8843869 (Version 3)
Quarter: 2012Q4

REPORT INFORMATION
  Report Type: 
  Country: US (occurrence: US)
  Receive Date: 20121016
  Receipt Date: 20121127
  Transmission Date: 20130627
  Serious: Yes (Death)
  Sender: FDA-Public Use
  Company Number: US-PFIZER INC-2012253136

PATIENT
  Age: 73 Year
  Sex: Male

DRUGS (2)
  1. SUTENT [Suspect]
     Indication: MALIGNANT NEOPLASM OF LIVER, PRIMARY
     Dosage: 25 mg, 1x/day
     Route: 048
     Dates: start: 20120821
  2. SUTENT [Suspect]
     Indication: DISEASE PROGRESSION

REACTIONS (2)
  - Disease progression [Fatal]
  - Hepatic cancer [Fatal]
